FAERS Safety Report 23425667 (Version 1)
Quarter: 2024Q1

REPORT INFORMATION
  Report Type: Spontaneous
  Country: ES (occurrence: ES)
  Receive Date: 20240122
  Receipt Date: 20240122
  Transmission Date: 20240410
  Serious: Yes (Other)
  Sender: FDA-Public Use
  Company Number: ES-GERMAN-LIT/ESP/24/0000913

PATIENT
  Age: 65 Year
  Sex: Female

DRUGS (3)
  1. LENALIDOMIDE [Suspect]
     Active Substance: LENALIDOMIDE
     Indication: Acute myeloid leukaemia
  2. IDARUBICIN [Suspect]
     Active Substance: IDARUBICIN
  3. CYTARABINE [Suspect]
     Active Substance: CYTARABINE

REACTIONS (2)
  - Disease progression [Unknown]
  - Treatment failure [Unknown]
